FAERS Safety Report 10010528 (Version 3)
Quarter: 2014Q2

REPORT INFORMATION
  Report Type: Spontaneous
  Country: DE (occurrence: DE)
  Receive Date: 20140314
  Receipt Date: 20140429
  Transmission Date: 20141212
  Serious: Yes (Hospitalization)
  Sender: FDA-Public Use
  Company Number: DE-AMGEN-DEUSP2014017108

PATIENT
  Sex: Male

DRUGS (7)
  1. PEGFILGRASTIM [Suspect]
     Indication: B-CELL LYMPHOMA
     Dosage: 6 MG, 1X
     Route: 058
     Dates: start: 20121124
  2. RITUXIMAB [Concomitant]
     Indication: B-CELL LYMPHOMA
     Dosage: 740 MG, 2X
     Route: 042
     Dates: start: 20121108
  3. CYCLOPHOSPHAMIDE [Concomitant]
     Indication: B-CELL LYMPHOMA
     Dosage: 1480 MG, 1X
     Route: 042
     Dates: start: 20121121
  4. DOXORUBICINE                       /00330901/ [Concomitant]
     Indication: B-CELL LYMPHOMA
     Dosage: 100 MG, 1X
     Route: 042
     Dates: start: 20121121
  5. VINCRISTINE [Concomitant]
     Indication: B-CELL LYMPHOMA
     Dosage: 2 MG, 1X
     Route: 042
     Dates: start: 20121121
  6. PREDNISONE [Concomitant]
     Indication: B-CELL LYMPHOMA
     Dosage: 100 MG, 12X
     Route: 048
     Dates: start: 20121107
  7. METHOTREXATE DISODIUM [Concomitant]
     Indication: B-CELL LYMPHOMA
     Dosage: 995 MG, 1X
     Route: 042
     Dates: start: 20121109

REACTIONS (1)
  - Back pain [Recovered/Resolved]
